FAERS Safety Report 8276122 (Version 4)
Quarter: 2012Q4

REPORT INFORMATION
  Report Type: 
  Country: JP (occurrence: JP)
  Receive Date: 20111206
  Receipt Date: 20121219
  Transmission Date: 20130627
  Serious: Yes (Hospitalization, Other)
  Sender: FDA-Public Use
  Company Number: JP-AMGEN-JPNSP2011063761

PATIENT
  Age: 58 Year
  Sex: Female
  Weight: 38 kg

DRUGS (13)
  1. ENBREL [Suspect]
     Indication: RHEUMATOID ARTHRITIS
     Dosage: 25 mg, 2x/week (50 mg/week)
     Dates: start: 20061129, end: 201012
  2. MOBIC [Concomitant]
     Dosage: 10 mg, 1x/day
     Route: 048
  3. ALFAROL [Concomitant]
     Dosage: 0.25 ug, 1x/day
     Route: 048
  4. STAYBLA [Concomitant]
     Dosage: 0.1 mg, 2x/day
     Route: 048
  5. PREDNISOLONE [Concomitant]
     Dosage: 5 mg, 2x/day
     Route: 048
  6. PREDNISOLONE [Concomitant]
     Dosage: 1 mg, 4x/day
     Route: 048
  7. PREDNISOLONE [Concomitant]
     Dosage: 40 mg/day
  8. BONOTEO [Concomitant]
     Dosage: 1 mg, 1x/day
     Route: 048
  9. ANPLAG [Concomitant]
     Dosage: 100 mg, 3x/day
  10. METHYCOBAL [Concomitant]
     Dosage: 500 ug, 3x/day
  11. MIYA-BM [Concomitant]
     Dosage: 1 DF, 3x/day
     Route: 048
  12. OMEPRAL /00661201/ [Concomitant]
     Dosage: 10 mg, qd
     Route: 048
  13. VOLTAREN                           /00372301/ [Concomitant]
     Dosage: 25 mg, bid (Suppository)

REACTIONS (4)
  - Knee operation [Recovered/Resolved]
  - Rheumatoid vasculitis [Recovered/Resolved]
  - Cellulitis [Unknown]
  - Leukocytoclastic vasculitis [Recovered/Resolved]
